FAERS Safety Report 9127091 (Version 1)
Quarter: 2013Q1

REPORT INFORMATION
  Report Type: Spontaneous
  Country: GB (occurrence: GB)
  Receive Date: 20130228
  Receipt Date: 20130228
  Transmission Date: 20140127
  Serious: Yes (Hospitalization, Other)
  Sender: FDA-Public Use
  Company Number: PHFR2013GB000583

PATIENT
  Age: 56 Year
  Sex: Female

DRUGS (7)
  1. CLOZARIL [Suspect]
     Indication: SCHIZOPHRENIA
     Dosage: UNK
     Route: 048
     Dates: start: 20121211, end: 20130110
  2. CLOZARIL [Suspect]
     Dosage: UNK
     Route: 048
     Dates: start: 20130111
  3. FOLIC ACID [Concomitant]
     Dosage: 5 MG, UNK
     Route: 048
     Dates: start: 20130203
  4. THIAMINE [Concomitant]
     Dosage: 300 MG, UNK
     Route: 048
     Dates: start: 20130203
  5. VITAMIN B [Concomitant]
     Dosage: 6 DF, UNK
     Route: 048
     Dates: start: 20130203
  6. CALCEOS [Concomitant]
     Dosage: 2 DF, UNK
     Route: 048
     Dates: start: 20130203
  7. OMEPRAZOLE [Concomitant]
     Dosage: 20 MG, UNK
     Route: 048
     Dates: start: 20130203

REACTIONS (6)
  - Neutrophil count increased [Recovered/Resolved]
  - Pneumonia [Unknown]
  - Electrocardiogram QT prolonged [Recovered/Resolved]
  - White blood cell count increased [Recovered/Resolved]
  - Blood pressure increased [Unknown]
  - Tachycardia [Unknown]
